FAERS Safety Report 9953642 (Version 1)
Quarter: 2014Q1

REPORT INFORMATION
  Report Type: Spontaneous
  Country: US (occurrence: US)
  Receive Date: 20140304
  Receipt Date: 20140304
  Transmission Date: 20141002
  Serious: No
  Sender: FDA-Public Use
  Company Number: US-AMGEN-USASP2014001123

PATIENT
  Age: 66 Year
  Sex: Female
  Weight: 58.05 kg

DRUGS (7)
  1. ENBREL [Suspect]
     Indication: PRODUCT USED FOR UNKNOWN INDICATION
     Dosage: 50 MG, ONCE A WEEK
     Route: 058
  2. METHOTREXATE [Concomitant]
     Dosage: 2.5 MG, UNK
  3. FOLIC ACID [Concomitant]
     Dosage: 1 MG, UNK
  4. PROCHLORPERAZIN [Concomitant]
     Dosage: 25 MG, UNK
  5. FROVA [Concomitant]
     Dosage: 2.5 MG, UNK
  6. DURAGESIC                          /00070401/ [Concomitant]
     Dosage: DURAGESIC DIS, 100 MCG/H
  7. MOTRIN IB [Concomitant]
     Dosage: 200 MG, UNK

REACTIONS (4)
  - Migraine [Unknown]
  - Injection site erythema [Unknown]
  - Injection site pruritus [Unknown]
  - Injection site reaction [Unknown]
